FAERS Safety Report 5313544-5 (Version None)
Quarter: 2007Q2

REPORT INFORMATION
  Report Type: 
  Country: None (occurrence: None)
  Receive Date: 20070501
  Receipt Date: 20061128
  Transmission Date: 20071010
  Serious: No
  Sender: FDA-Public Use
  Company Number: 2006UW26507

PATIENT
  Age: 19 Year
  Sex: Female
  Weight: 61.2 kg

DRUGS (4)
  1. ENTOCORT EC [Suspect]
     Indication: CROHN'S DISEASE
     Route: 048
     Dates: start: 20061001
  2. CECLOR [Suspect]
     Indication: SINUSITIS
  3. ASACOL [Concomitant]
  4. ZOLOFT [Concomitant]

REACTIONS (6)
  - ABDOMINAL DISTENSION [None]
  - ASTHENIA [None]
  - CONSTIPATION [None]
  - MALAISE [None]
  - NAUSEA [None]
  - SINUSITIS [None]
